FAERS Safety Report 7538021-2 (Version None)
Quarter: 2011Q2

REPORT INFORMATION
  Report Type: 
  Country: None (occurrence: None)
  Receive Date: 20110609
  Receipt Date: 20110527
  Transmission Date: 20111010
  Serious: Yes (Other)
  Sender: FDA-Public Use
  Company Number: PHHY2011NL45716

PATIENT
  Sex: Male

DRUGS (8)
  1. ZOMETA [Suspect]
     Indication: LUNG CANCER METASTATIC
     Dosage: 4 MG/5ML ONCE PER 28 DAYS (20 MINUTES INTRAVENOUS)
     Dates: start: 20100726
  2. CALCIUM CARBONATE [Concomitant]
  3. ECHINACEA [Concomitant]
  4. MAGNESIUM SULFATE [Concomitant]
  5. ZOMETA [Suspect]
     Dosage: 4 MG/5ML ONCE PER 28 DAYS (20 MINUTES INTRAVENOUS)
     Dates: start: 20110502
  6. PULMICORT [Concomitant]
  7. Q10 [Concomitant]
  8. VENTOLIN HFA [Concomitant]

REACTIONS (1)
  - BRONCHITIS [None]
